FAERS Safety Report 5740051-8 (Version None)
Quarter: 2008Q2

REPORT INFORMATION
  Report Type: 
  Country: None (occurrence: None)
  Receive Date: 20080516
  Receipt Date: 20080513
  Transmission Date: 20081010
  Serious: Yes (Other)
  Sender: FDA-Public Use
  Company Number: PHHY2008BR07857

PATIENT
  Sex: Female

DRUGS (3)
  1. TRILEPTAL [Suspect]
     Indication: AFFECTIVE DISORDER
     Dosage: 1800 MG DAILY
     Route: 048
     Dates: start: 20000101
  2. TRILEPTAL [Suspect]
     Dosage: 1500 MG DAILY
     Route: 048
  3. TRILEPTAL [Suspect]
     Dosage: 900 MG DAILY
     Route: 048

REACTIONS (4)
  - GOITRE [None]
  - OSTEOPENIA [None]
  - OSTEOPOROSIS [None]
  - THYROIDECTOMY [None]
